FAERS Safety Report 14392136 (Version 1)
Quarter: 2018Q1

REPORT INFORMATION
  Report Type: Report from Study
  Country: FR (occurrence: FR)
  Receive Date: 20180116
  Receipt Date: 20180116
  Transmission Date: 20180509
  Serious: Yes (Death, Hospitalization)
  Sender: FDA-Public Use
  Company Number: FR-ROCHE-1934828

PATIENT
  Age: 58 Year
  Sex: Female
  Weight: 52 kg

DRUGS (5)
  1. XALATAN [Concomitant]
     Active Substance: LATANOPROST
     Dosage: 1 GTT IN THE EVENING IN BOTH EYES
     Route: 065
  2. BISOPROLOL [Concomitant]
     Active Substance: BISOPROLOL
     Dosage: 1-0-0
     Route: 065
  3. KARDEGIC [Concomitant]
     Active Substance: ASPIRIN DL-LYSINE
     Dosage: 1-0-0
     Route: 065
  4. VEMURAFENIB. [Suspect]
     Active Substance: VEMURAFENIB
     Indication: NEOPLASM MALIGNANT
     Dosage: ON 10/MAY/2017, SHE RECEIVED LAST DOSE (1920 MG) (CUMULATIVE DOSE SINCE FIRST ADMINISTRATION WAS 111
     Route: 048
     Dates: start: 20170313
  5. SERESTA [Concomitant]
     Active Substance: OXAZEPAM
     Dosage: 1 DF AS NEEDED
     Route: 065

REACTIONS (2)
  - Lung disorder [Recovered/Resolved with Sequelae]
  - Acute respiratory failure [Recovered/Resolved with Sequelae]

NARRATIVE: CASE EVENT DATE: 20170510
